FAERS Safety Report 20602468 (Version 6)
Quarter: 2024Q4

REPORT INFORMATION
  Report Type: Report from Study
  Country: CA (occurrence: CA)
  Receive Date: 20220316
  Receipt Date: 20241230
  Transmission Date: 20250115
  Serious: Yes (Hospitalization, Other)
  Sender: TAKEDA
  Company Number: CA-TAKEDA-2016TUS019389

PATIENT
  Age: 69 Year
  Sex: Female

DRUGS (25)
  1. VEDOLIZUMAB [Suspect]
     Active Substance: VEDOLIZUMAB
     Indication: Crohn^s disease
     Dosage: 300 MILLIGRAM
  2. VEDOLIZUMAB [Suspect]
     Active Substance: VEDOLIZUMAB
     Dosage: 300 MILLIGRAM
  3. VEDOLIZUMAB [Suspect]
     Active Substance: VEDOLIZUMAB
     Dosage: 300 MILLIGRAM
  4. VEDOLIZUMAB [Suspect]
     Active Substance: VEDOLIZUMAB
     Dosage: 300 MILLIGRAM
  5. VEDOLIZUMAB [Suspect]
     Active Substance: VEDOLIZUMAB
     Dosage: 300 MILLIGRAM
  6. VEDOLIZUMAB [Suspect]
     Active Substance: VEDOLIZUMAB
     Dosage: 300 MILLIGRAM
  7. VEDOLIZUMAB [Suspect]
     Active Substance: VEDOLIZUMAB
     Dosage: 300 MILLIGRAM
  8. VEDOLIZUMAB [Suspect]
     Active Substance: VEDOLIZUMAB
     Dosage: 300 MILLIGRAM
  9. VEDOLIZUMAB [Suspect]
     Active Substance: VEDOLIZUMAB
     Dosage: 300 MILLIGRAM, Q4WEEKS
     Dates: start: 20230721
  10. VEDOLIZUMAB [Suspect]
     Active Substance: VEDOLIZUMAB
     Dosage: 300 MILLIGRAM, Q4WEEKS
  11. VEDOLIZUMAB [Suspect]
     Active Substance: VEDOLIZUMAB
     Dosage: 300 MILLIGRAM, Q4WEEKS
  12. VEDOLIZUMAB [Suspect]
     Active Substance: VEDOLIZUMAB
     Dosage: 300 MILLIGRAM, Q4WEEKS
     Dates: start: 20230721
  13. RISPERIDONE [Suspect]
     Active Substance: RISPERIDONE
     Indication: Product used for unknown indication
     Dosage: 0.75 MILLIGRAM, QD
  14. SULFASALAZINE [Concomitant]
     Active Substance: SULFASALAZINE
     Dosage: UNK
  15. VITAMIN C [Concomitant]
     Active Substance: ASCORBIC ACID
     Dosage: UNK
  16. AMITRIPTYLINE [Concomitant]
     Active Substance: AMITRIPTYLINE
     Indication: Fibromyalgia
     Dosage: UNK
  17. IRON [Concomitant]
     Active Substance: IRON
     Dosage: UNK
  18. ASPIRIN [Concomitant]
     Active Substance: ASPIRIN
     Dosage: UNK
  19. CELEBREX [Concomitant]
     Active Substance: CELECOXIB
     Indication: Arthritis
     Dosage: 200 MILLIGRAM, QD
  20. LUTEIN [Concomitant]
     Active Substance: LUTEIN
     Dosage: 10 MILLIGRAM, BID
  21. QUESTRAN [Concomitant]
     Active Substance: CHOLESTYRAMINE
     Indication: Hypercholesterolaemia
     Dosage: UNK
  22. IMODIUM [Concomitant]
     Active Substance: LOPERAMIDE HYDROCHLORIDE
     Dosage: 2 MILLIGRAM
  23. IMODIUM [Concomitant]
     Active Substance: LOPERAMIDE HYDROCHLORIDE
     Dosage: 4 MILLIGRAM, QD
  24. SYNTHROID [Concomitant]
     Active Substance: LEVOTHYROXINE SODIUM
     Indication: Thyroid disorder
     Dosage: 0.125 MILLIGRAM
  25. INVEGA [Concomitant]
     Active Substance: PALIPERIDONE
     Dosage: 50 MILLIGRAM

REACTIONS (22)
  - Crohn^s disease [Not Recovered/Not Resolved]
  - Intestinal obstruction [Recovered/Resolved]
  - Arthralgia [Recovering/Resolving]
  - Joint swelling [Unknown]
  - Mental disorder [Unknown]
  - Diarrhoea [Not Recovered/Not Resolved]
  - Impaired healing [Unknown]
  - Multiple allergies [Not Recovered/Not Resolved]
  - Asthenia [Not Recovered/Not Resolved]
  - Product dose omission issue [Unknown]
  - Therapeutic reaction time decreased [Unknown]
  - Off label use [Unknown]
  - Abdominal pain [Unknown]
  - Vomiting [Not Recovered/Not Resolved]
  - Nasal congestion [Unknown]
  - Nasopharyngitis [Unknown]
  - Influenza [Not Recovered/Not Resolved]
  - Cough [Unknown]
  - Fatigue [Unknown]
  - Anorectal discomfort [Unknown]
  - Haemorrhoids [Unknown]
  - Constipation [Unknown]

NARRATIVE: CASE EVENT DATE: 20190310
